FAERS Safety Report 6536424-6 (Version None)
Quarter: 2010Q1

REPORT INFORMATION
  Report Type: 
  Country: None (occurrence: None)
  Receive Date: 20100113
  Receipt Date: 20100105
  Transmission Date: 20100710
  Serious: Yes (Life-Threatening)
  Sender: FDA-Public Use
  Company Number: GXKR2010GB00499

PATIENT
  Age: 68 Year
  Sex: Female
  Weight: 107 kg

DRUGS (7)
  1. AMOXICILLIN AND CLAVULANATE POTASSIUM [Suspect]
     Indication: PROPHYLAXIS
     Dosage: 1.2 G, UNK
     Route: 042
     Dates: start: 20091230, end: 20091230
  2. FRUSEMIDE [Concomitant]
     Route: 065
  3. LANTUS [Concomitant]
     Route: 065
  4. LEVOTHYROXINE SODIUM [Concomitant]
     Route: 065
  5. METFORMIN [Concomitant]
     Route: 065
  6. SIMVASTATIN [Concomitant]
     Route: 065
  7. SOLPADOL [Concomitant]
     Route: 065

REACTIONS (2)
  - BRADYCARDIA [None]
  - CARDIAC ARREST [None]
